FAERS Safety Report 15980122 (Version 2)
Quarter: 2025Q3

REPORT INFORMATION
  Report Type: Spontaneous
  Country: LK (occurrence: LK)
  Receive Date: 20190219
  Receipt Date: 20250729
  Transmission Date: 20251020
  Serious: Yes (Hospitalization, Other)
  Sender: PURDUE
  Company Number: LK-MLMSERVICE-20170718-0813495-1

PATIENT
  Age: 63 Year
  Sex: Female

DRUGS (12)
  1. MORPHINE SULFATE [Suspect]
     Active Substance: MORPHINE SULFATE
     Indication: Product used for unknown indication
     Route: 042
  2. MORPHINE SULFATE [Suspect]
     Active Substance: MORPHINE SULFATE
     Route: 042
  3. MORPHINE SULFATE [Suspect]
     Active Substance: MORPHINE SULFATE
     Indication: Product used for unknown indication
     Route: 042
  4. MORPHINE SULFATE [Suspect]
     Active Substance: MORPHINE SULFATE
     Route: 042
  5. NITROUS OXIDE [Suspect]
     Active Substance: NITROUS OXIDE
     Indication: Maintenance of anaesthesia
     Route: 065
  6. ISOFLURANE [Suspect]
     Active Substance: ISOFLURANE
     Indication: Maintenance of anaesthesia
     Route: 055
  7. ISOFLURANE [Suspect]
     Active Substance: ISOFLURANE
     Route: 055
  8. PROPOFOL [Suspect]
     Active Substance: PROPOFOL
     Indication: General anaesthesia
     Route: 042
  9. ATRACURIUM [Suspect]
     Active Substance: ATRACURIUM
     Indication: General anaesthesia
     Route: 042
  10. OXYGEN [Suspect]
     Active Substance: OXYGEN
     Indication: Maintenance of anaesthesia
     Route: 065
  11. OXYGEN [Suspect]
     Active Substance: OXYGEN
     Route: 065
  12. FENTANYL [Suspect]
     Active Substance: FENTANYL
     Indication: General anaesthesia
     Route: 042

REACTIONS (2)
  - Cardiogenic shock [Recovered/Resolved]
  - Stress cardiomyopathy [Recovered/Resolved]
